FAERS Safety Report 7842693-2 (Version None)
Quarter: 2011Q4

REPORT INFORMATION
  Report Type: 
  Country: None (occurrence: None)
  Receive Date: 20111025
  Receipt Date: 20111019
  Transmission Date: 20120403
  Serious: Yes (Other)
  Sender: FDA-Public Use
  Company Number: US-PFIZER INC-2011242348

PATIENT
  Sex: Female
  Weight: 104.31 kg

DRUGS (11)
  1. TOVIAZ [Suspect]
     Indication: STRESS URINARY INCONTINENCE
     Dosage: 4 MG, 1X/DAY
     Dates: start: 20111006, end: 20111017
  2. HYDROCHLOROTHIAZIDE [Concomitant]
     Dosage: UNK
  3. RAMIPRIL [Concomitant]
     Dosage: UNK
  4. PRAVACHOL [Concomitant]
     Dosage: UNK
  5. OMEPRAZOLE [Concomitant]
     Dosage: UNK
  6. TOPROL-XL [Concomitant]
     Dosage: UNK
  7. TOVIAZ [Suspect]
     Indication: URGE INCONTINENCE
  8. TROSPIUM CHLORIDE [Concomitant]
     Indication: HYPERTONIC BLADDER
     Dosage: 60 MG, 1X/DAY
  9. ACETYLSALICYLIC ACID [Concomitant]
     Dosage: UNK
  10. NEURONTIN [Concomitant]
     Indication: HERPES ZOSTER
     Dosage: UNK
  11. PROPAFENONE [Concomitant]
     Indication: ATRIAL FIBRILLATION
     Dosage: UNK

REACTIONS (7)
  - LIP SWELLING [None]
  - THROAT TIGHTNESS [None]
  - DYSPNOEA [None]
  - SURGERY [None]
  - SWELLING FACE [None]
  - URTICARIA [None]
  - ERYTHEMA [None]
